FAERS Safety Report 7369080-8 (Version None)
Quarter: 2011Q1

REPORT INFORMATION
  Report Type: 
  Country: None (occurrence: None)
  Receive Date: 20110309
  Receipt Date: 20110301
  Transmission Date: 20110831
  Serious: Yes (Life-Threatening, Hospitalization, Other)
  Sender: FDA-Public Use
  Company Number: 2010SP023349

PATIENT
  Age: 63 Year
  Sex: Female
  Weight: 57 kg

DRUGS (12)
  1. OXYCODONE [Concomitant]
  2. ZOLPIDEM TARTRATE [Concomitant]
  3. OXYCODONE [Concomitant]
  4. ASPIRIN [Concomitant]
  5. DEXAMETHASONE [Concomitant]
  6. MACROGEL [Concomitant]
  7. LANSOPRAZOLE [Concomitant]
  8. TEMOZOLOMIDE [Suspect]
     Indication: GLIOBLASTOMA
     Dosage: PO
     Route: 048
     Dates: start: 20100301, end: 20100328
  9. ABT-888 [Suspect]
     Indication: GLIOBLASTOMA MULTIFORME
     Dosage: 10 MG;QD;PO ; 10 MG;BID;PO
     Route: 048
     Dates: start: 20100302, end: 20100328
  10. ABT-888 [Suspect]
     Indication: GLIOBLASTOMA MULTIFORME
     Dosage: 10 MG;QD;PO ; 10 MG;BID;PO
     Route: 048
     Dates: start: 20100301, end: 20100301
  11. DUCOSATE SODIUM [Concomitant]
  12. BISACODYL [Concomitant]

REACTIONS (8)
  - LIVER FUNCTION TEST ABNORMAL [None]
  - FATIGUE [None]
  - HAEMOGLOBIN DECREASED [None]
  - BONE PAIN [None]
  - REFUSAL OF TREATMENT BY PATIENT [None]
  - THROMBOCYTOPENIA [None]
  - FEBRILE NEUTROPENIA [None]
  - ARTHRALGIA [None]
